FAERS Safety Report 4722866-8 (Version None)
Quarter: 2005Q3

REPORT INFORMATION
  Report Type: 
  Country: None (occurrence: None)
  Receive Date: 20050722
  Receipt Date: 20050720
  Transmission Date: 20060218
  Serious: Yes (Other)
  Sender: FDA-Public Use
  Company Number: DE-GLAXOSMITHKLINE-D0047130A

PATIENT
  Age: 54 Year
  Sex: Female

DRUGS (1)
  1. ELMENDOS [Suspect]
     Route: 065
     Dates: start: 20050417

REACTIONS (1)
  - PULMONARY EMBOLISM [None]
